FAERS Safety Report 6286470-5 (Version None)
Quarter: 2009Q3

REPORT INFORMATION
  Report Type: 
  Country: None (occurrence: None)
  Receive Date: 20090728
  Receipt Date: 20090720
  Transmission Date: 20100115
  Serious: Yes (Other)
  Sender: FDA-Public Use
  Company Number: B0585069A

PATIENT
  Age: 41 Year
  Sex: Male

DRUGS (1)
  1. DEROXAT [Suspect]
     Indication: DEPRESSION
     Dosage: 20MG PER DAY
     Route: 048
     Dates: end: 20090714

REACTIONS (12)
  - ABNORMAL DREAMS [None]
  - ANXIETY [None]
  - BRUXISM [None]
  - DENTAL NECROSIS [None]
  - DIZZINESS [None]
  - HEADACHE [None]
  - INFLUENZA LIKE ILLNESS [None]
  - MYALGIA [None]
  - NAUSEA [None]
  - NERVOUSNESS [None]
  - TINNITUS [None]
  - WITHDRAWAL SYNDROME [None]
